FAERS Safety Report 10870283 (Version 2)
Quarter: 2015Q2

REPORT INFORMATION
  Report Type: Report from Study
  Country: US (occurrence: US)
  Receive Date: 20150226
  Receipt Date: 20150414
  Transmission Date: 20150821
  Serious: Yes (Other)
  Sender: FDA-Public Use
  Company Number: US-SA-2015SA022736

PATIENT
  Age: 57 Year
  Sex: Female

DRUGS (1)
  1. CEREZYME [Suspect]
     Active Substance: IMIGLUCERASE
     Indication: GAUCHER^S DISEASE
     Dosage: FREQUENCY: Q2 DOSE:2800 UNIT(S)
     Route: 042
     Dates: start: 19920624

REACTIONS (1)
  - Rotator cuff syndrome [Not Recovered/Not Resolved]
